FAERS Safety Report 5224825-8 (Version None)
Quarter: 2007Q1

REPORT INFORMATION
  Report Type: 
  Country: None (occurrence: None)
  Receive Date: 20070126
  Receipt Date: 20070116
  Transmission Date: 20070707
  Serious: Yes (Other)
  Sender: FDA-Public Use
  Company Number: B0455209A

PATIENT
  Age: 53 Year
  Sex: Male

DRUGS (3)
  1. AUGMENTIN '250' [Suspect]
     Indication: CHRONIC SINUSITIS
     Dosage: 874 MG / TWICE PER DAY
  2. LORATADINE [Concomitant]
  3. BUDESONIDE [Concomitant]

REACTIONS (1)
  - HEPATITIS [None]
